FAERS Safety Report 14212401 (Version 6)
Quarter: 2019Q4

REPORT INFORMATION
  Report Type: Spontaneous
  Country: FR (occurrence: FR)
  Receive Date: 20171122
  Receipt Date: 20191218
  Transmission Date: 20200122
  Serious: Yes (Other)
  Sender: FDA-Public Use
  Company Number: FR-TEVA-2017-FR-825918

PATIENT
  Sex: Male

DRUGS (4)
  1. ACIDE ALENDRONIQUE BIOGARAN 70 MG COMPRIME [Suspect]
     Active Substance: ALENDRONATE SODIUM
     Indication: OSTEOPOROSIS
     Route: 048
     Dates: start: 20130603
  2. ACIDE ALENDRONIQUE BIOGARAN 70 MG COMPRIME [Suspect]
     Active Substance: ALENDRONATE SODIUM
     Indication: OFF LABEL USE
  3. UVEDOSE [Concomitant]
     Active Substance: CHOLECALCIFEROL
     Route: 065
     Dates: start: 2013
  4. TN UNSPECIFIED [Concomitant]
     Route: 065
     Dates: start: 2014

REACTIONS (7)
  - Tooth abscess [Not Recovered/Not Resolved]
  - Intentional product use issue [Not Recovered/Not Resolved]
  - Off label use [Unknown]
  - Gingival injury [Not Recovered/Not Resolved]
  - Abscess oral [Not Recovered/Not Resolved]
  - Tooth fracture [Not Recovered/Not Resolved]
  - Oesophageal pain [Not Recovered/Not Resolved]

NARRATIVE: CASE EVENT DATE: 2013
